FAERS Safety Report 8401379-6 (Version None)
Quarter: 2012Q2

REPORT INFORMATION
  Report Type: 
  Country: None (occurrence: None)
  Receive Date: 20120601
  Receipt Date: 20120522
  Transmission Date: 20120825
  Serious: Yes (Hospitalization)
  Sender: FDA-Public Use
  Company Number: US-JNJFOC-20120518307

PATIENT
  Sex: Male
  Weight: 113.4 kg

DRUGS (4)
  1. REMICADE [Suspect]
     Route: 042
     Dates: end: 20110101
  2. REMICADE [Suspect]
     Indication: RHEUMATOID ARTHRITIS
     Route: 042
  3. REMICADE [Suspect]
     Indication: CROHN'S DISEASE
     Route: 042
     Dates: end: 20110101
  4. REMICADE [Suspect]
     Route: 042

REACTIONS (11)
  - DERMAL CYST [None]
  - OEDEMA PERIPHERAL [None]
  - LEG AMPUTATION [None]
  - STREPTOCOCCAL INFECTION [None]
  - ABNORMAL LOSS OF WEIGHT [None]
  - ARTHROPATHY [None]
  - TRANSPLANT REJECTION [None]
  - CROHN'S DISEASE [None]
  - STAPHYLOCOCCAL INFECTION [None]
  - RHEUMATOID ARTHRITIS [None]
  - SKIN DISCOLOURATION [None]
